FAERS Safety Report 9279129 (Version 2)
Quarter: 2013Q2

REPORT INFORMATION
  Report Type: Spontaneous
  Country: FR (occurrence: FR)
  Receive Date: 20130508
  Receipt Date: 20130515
  Transmission Date: 20140414
  Serious: Yes (Hospitalization)
  Sender: FDA-Public Use
  Company Number: FR-VERTEX PHARMACEUTICALS INC-000000000000000322

PATIENT
  Age: 62 Year
  Sex: Female
  Weight: 66 kg

DRUGS (19)
  1. INCIVO [Suspect]
     Indication: HEPATITIS C
     Dosage: 750 MG, TID
     Route: 048
     Dates: start: 20110926, end: 20111219
  2. COPEGUS [Suspect]
     Indication: HEPATITIS C
     Dosage: DOSAGE FORM: UNSPECIFIED, 2-0-2
     Route: 048
     Dates: start: 20111011, end: 20111219
  3. COPEGUS [Suspect]
     Dosage: DOSAGE FORM: UNSPECIFIED, 1-0-2
     Route: 048
     Dates: start: 20111219, end: 201203
  4. COPEGUS [Suspect]
     Dosage: DOSAGE FORM: UNSPECIFIED, 2-0-3
     Route: 048
     Dates: start: 20110926, end: 20111010
  5. PEGASYS [Suspect]
     Indication: HEPATITIS C
     Dosage: DOSAGE FORM: UNSPECIFIED
     Route: 058
     Dates: start: 20110926, end: 20111220
  6. PEGASYS [Suspect]
     Dosage: DOSAGE FORM: UNSPECIFIED
     Route: 058
     Dates: start: 20111227, end: 201203
  7. INTERFERON [Suspect]
     Indication: PRODUCT USED FOR UNKNOWN INDICATION
     Dosage: DOSAGE FORM: UNSPECIFIED
     Route: 065
  8. COAPROVEL [Concomitant]
     Indication: HYPERTENSION
     Dosage: 150MG/12.5G 1-0-0
     Dates: start: 2011
  9. BISOPROLOL [Concomitant]
     Indication: HYPERTENSION
     Dosage: 1-0-0
     Dates: start: 2008
  10. PARACETAMOL [Concomitant]
     Dosage: 3 G, QD
  11. NOROXINE [Concomitant]
     Indication: URINARY TRACT INFECTION
     Dosage: 1-0-1
     Dates: start: 20111107, end: 20111110
  12. NOROXINE [Concomitant]
     Dosage: 400 MG, BID
     Dates: start: 20111110, end: 20111114
  13. OFLOCET [Concomitant]
     Indication: URINARY TRACT INFECTION
     Dosage: 1-0-1
     Dates: start: 20111011, end: 20111016
  14. CEFTRIAXONE [Concomitant]
     Indication: URINARY TRACT INFECTION
     Dosage: 1 G, QD
     Dates: start: 20111130, end: 20111206
  15. CEFTRIAXONE [Concomitant]
     Dosage: 1 G, UNK
     Dates: start: 20120117, end: 20120124
  16. LANSOPRAZOLE [Concomitant]
     Indication: BURN OESOPHAGEAL
     Dosage: 30 MG, QD
     Dates: start: 20111124
  17. SPECIAFOLDINE [Concomitant]
     Indication: ANAEMIA
     Dosage: 5 MG, QD
     Dates: start: 20111220
  18. XANAX [Concomitant]
     Indication: SLEEP DISORDER
     Dosage: DOSAGE FORM: UNSPECIFIED, 0.25
     Route: 065
     Dates: start: 20111017
  19. XANAX [Concomitant]
     Indication: ANXIETY

REACTIONS (7)
  - Pancytopenia [Not Recovered/Not Resolved]
  - Anxiety [Unknown]
  - Visual impairment [Recovered/Resolved]
  - Haemolytic anaemia [Unknown]
  - Sleep disorder [Unknown]
  - Thrombocytopenia [Unknown]
  - Viral load increased [Unknown]
